FAERS Safety Report 25375148 (Version 1)
Quarter: 2025Q2

REPORT INFORMATION
  Report Type: Spontaneous
  Country: US (occurrence: None)
  Receive Date: 20250529
  Receipt Date: 20250529
  Transmission Date: 20250717
  Serious: Yes (Disabling, Other)
  Sender: FDA-CTU
  Company Number: None

PATIENT
  Age: 69 Year
  Sex: Male
  Weight: 99 kg

DRUGS (11)
  1. HERBALS\MITRAGYNINE [Suspect]
     Active Substance: HERBALS\MITRAGYNINE
     Indication: Anxiety
     Route: 048
     Dates: start: 20191130
  2. HERBALS\MITRAGYNINE [Suspect]
     Active Substance: HERBALS\MITRAGYNINE
     Indication: Headache
  3. GABAPENTIN [Concomitant]
     Active Substance: GABAPENTIN
  4. CLONIDINE [Concomitant]
     Active Substance: CLONIDINE
  5. PAXIL [Concomitant]
     Active Substance: PAROXETINE HYDROCHLORIDE
  6. KLONOPIN [Concomitant]
     Active Substance: CLONAZEPAM
  7. ATORVASTATIN [Concomitant]
     Active Substance: ATORVASTATIN
  8. XARELTO [Concomitant]
     Active Substance: RIVAROXABAN
  9. HERBALS\MITRAGYNINE [Concomitant]
     Active Substance: HERBALS\MITRAGYNINE
  10. VITAMIN D [Concomitant]
     Active Substance: VITAMIN D NOS
  11. IBUPROFEN [Concomitant]
     Active Substance: IBUPROFEN

REACTIONS (5)
  - Drug dependence [None]
  - Withdrawal syndrome [None]
  - Suicidal ideation [None]
  - Substance use [None]
  - Product communication issue [None]

NARRATIVE: CASE EVENT DATE: 20250508
